FAERS Safety Report 20331728 (Version 2)
Quarter: 2022Q1

REPORT INFORMATION
  Report Type: Spontaneous
  Country: TW (occurrence: TW)
  Receive Date: 20220113
  Receipt Date: 20220308
  Transmission Date: 20220423
  Serious: No
  Sender: FDA-Public Use
  Company Number: TW-PFIZER INC-202101797804

PATIENT
  Age: 9 Year
  Sex: Male

DRUGS (1)
  1. GENOTROPIN [Suspect]
     Active Substance: SOMATROPIN
     Indication: Growth hormone deficiency
     Dosage: 1.8 IU, QD (ONCE A DAY)
     Route: 058
     Dates: start: 20190918, end: 20211214

REACTIONS (1)
  - Device information output issue [Unknown]
